FAERS Safety Report 21200509 (Version 38)
Quarter: 2025Q1

REPORT INFORMATION
  Report Type: Spontaneous
  Country: CA (occurrence: CA)
  Receive Date: 20220811
  Receipt Date: 20250318
  Transmission Date: 20250409
  Serious: Yes (Other)
  Sender: BAUSCH AND LOMB
  Company Number: CA-BAUSCH-BL-2020-022260

PATIENT
  Age: 41 Year
  Sex: Female

DRUGS (760)
  1. DEXAMETHASONE [Suspect]
     Active Substance: DEXAMETHASONE
     Indication: Migraine
     Dosage: 2 ADMINISTRATIONS
     Route: 065
  2. DEXAMETHASONE [Suspect]
     Active Substance: DEXAMETHASONE
     Route: 065
  3. DEXAMETHASONE [Suspect]
     Active Substance: DEXAMETHASONE
     Route: 065
  4. DEXAMETHASONE [Suspect]
     Active Substance: DEXAMETHASONE
     Route: 065
  5. DEXAMETHASONE [Suspect]
     Active Substance: DEXAMETHASONE
     Route: 065
  6. VENLAFAXINE [Suspect]
     Active Substance: VENLAFAXINE HYDROCHLORIDE
     Indication: Migraine
     Route: 065
  7. VENLAFAXINE [Suspect]
     Active Substance: VENLAFAXINE HYDROCHLORIDE
     Indication: Product used for unknown indication
     Route: 065
  8. VENLAFAXINE [Suspect]
     Active Substance: VENLAFAXINE HYDROCHLORIDE
     Route: 065
  9. VENLAFAXINE [Suspect]
     Active Substance: VENLAFAXINE HYDROCHLORIDE
     Route: 065
  10. VENLAFAXINE [Suspect]
     Active Substance: VENLAFAXINE HYDROCHLORIDE
     Route: 065
  11. VENLAFAXINE [Suspect]
     Active Substance: VENLAFAXINE HYDROCHLORIDE
     Route: 065
  12. VENLAFAXINE [Suspect]
     Active Substance: VENLAFAXINE HYDROCHLORIDE
     Route: 065
  13. VENLAFAXINE [Suspect]
     Active Substance: VENLAFAXINE HYDROCHLORIDE
     Route: 065
  14. VENLAFAXINE [Suspect]
     Active Substance: VENLAFAXINE HYDROCHLORIDE
     Route: 065
  15. VENLAFAXINE [Suspect]
     Active Substance: VENLAFAXINE HYDROCHLORIDE
     Route: 065
  16. METRONIDAZOLE [Suspect]
     Active Substance: METRONIDAZOLE
     Indication: Product used for unknown indication
     Route: 065
  17. METRONIDAZOLE [Suspect]
     Active Substance: METRONIDAZOLE
     Indication: Migraine
  18. ALBUTEROL [Suspect]
     Active Substance: ALBUTEROL
     Indication: Product used for unknown indication
     Dosage: SALBUTAMOL
     Route: 065
  19. ALBUTEROL [Suspect]
     Active Substance: ALBUTEROL
     Dosage: SALBUTAMOL SULFATE
     Route: 065
  20. ALBUTEROL [Suspect]
     Active Substance: ALBUTEROL
     Dosage: SALBUTAMOL
     Route: 065
  21. ALBUTEROL [Suspect]
     Active Substance: ALBUTEROL
     Dosage: SALBUTAMOL HFA, METERED-DOSE (AEROSOL)
     Route: 065
  22. ALBUTEROL [Suspect]
     Active Substance: ALBUTEROL
     Dosage: SALBUTAMOL SULFATE
     Route: 065
  23. ALBUTEROL [Suspect]
     Active Substance: ALBUTEROL
     Dosage: SALBUTAMOL HFA, METERED-DOSE (AEROSOL)
     Route: 065
  24. ALBUTEROL [Suspect]
     Active Substance: ALBUTEROL
     Dosage: SALBUTAMOL
     Route: 065
  25. ALBUTEROL [Suspect]
     Active Substance: ALBUTEROL
     Route: 065
  26. ALBUTEROL [Suspect]
     Active Substance: ALBUTEROL
     Dosage: SALBUTAMOL SULFATE
     Route: 065
  27. ALBUTEROL [Suspect]
     Active Substance: ALBUTEROL
     Dosage: SALBUTAMOL
     Route: 065
  28. ALBUTEROL [Suspect]
     Active Substance: ALBUTEROL
     Dosage: SALBUTAMOL
     Route: 065
  29. ALBUTEROL [Suspect]
     Active Substance: ALBUTEROL
     Route: 065
  30. ALBUTEROL [Suspect]
     Active Substance: ALBUTEROL
     Route: 065
  31. ALBUTEROL [Suspect]
     Active Substance: ALBUTEROL
     Dosage: SALBUTAMOL
     Route: 065
  32. ALBUTEROL [Suspect]
     Active Substance: ALBUTEROL
     Route: 065
  33. TRAMADOL [Suspect]
     Active Substance: TRAMADOL
     Indication: Product used for unknown indication
     Route: 065
  34. TRAMADOL [Suspect]
     Active Substance: TRAMADOL
     Route: 065
  35. TRAMADOL [Suspect]
     Active Substance: TRAMADOL
     Route: 065
  36. TRAMADOL [Suspect]
     Active Substance: TRAMADOL
     Route: 065
  37. ACETAMINOPHEN [Suspect]
     Active Substance: ACETAMINOPHEN
     Indication: Migraine
     Route: 065
  38. ACETAMINOPHEN [Suspect]
     Active Substance: ACETAMINOPHEN
     Route: 065
  39. ACETAMINOPHEN [Suspect]
     Active Substance: ACETAMINOPHEN
     Route: 065
  40. ACETAMINOPHEN [Suspect]
     Active Substance: ACETAMINOPHEN
     Route: 065
  41. AZITHROMYCIN [Suspect]
     Active Substance: AZITHROMYCIN
     Indication: Migraine
     Route: 065
  42. AZITHROMYCIN [Suspect]
     Active Substance: AZITHROMYCIN
     Indication: Product used for unknown indication
     Route: 065
  43. AZITHROMYCIN [Suspect]
     Active Substance: AZITHROMYCIN
     Route: 065
  44. AZITHROMYCIN [Suspect]
     Active Substance: AZITHROMYCIN
     Route: 065
  45. AZITHROMYCIN [Suspect]
     Active Substance: AZITHROMYCIN
     Route: 065
  46. AZITHROMYCIN [Suspect]
     Active Substance: AZITHROMYCIN
     Route: 065
  47. AZITHROMYCIN [Suspect]
     Active Substance: AZITHROMYCIN
     Route: 065
  48. AZITHROMYCIN [Suspect]
     Active Substance: AZITHROMYCIN
     Route: 065
  49. AZITHROMYCIN [Suspect]
     Active Substance: AZITHROMYCIN
     Route: 065
  50. AZITHROMYCIN [Suspect]
     Active Substance: AZITHROMYCIN
     Route: 065
  51. AZITHROMYCIN [Suspect]
     Active Substance: AZITHROMYCIN
     Route: 065
  52. AZITHROMYCIN [Suspect]
     Active Substance: AZITHROMYCIN
     Route: 065
  53. AZITHROMYCIN [Suspect]
     Active Substance: AZITHROMYCIN
     Route: 065
  54. AZITHROMYCIN [Suspect]
     Active Substance: AZITHROMYCIN
     Route: 065
  55. CIPROFLOXACIN [Suspect]
     Active Substance: CIPROFLOXACIN
     Indication: Migraine
     Dosage: CIPROFLOXACIN
     Route: 065
  56. CIPROFLOXACIN [Suspect]
     Active Substance: CIPROFLOXACIN
     Indication: Product used for unknown indication
     Route: 065
  57. CIPROFLOXACIN [Suspect]
     Active Substance: CIPROFLOXACIN
     Dosage: CIPROFLOXACIN
     Route: 065
  58. CIPROFLOXACIN [Suspect]
     Active Substance: CIPROFLOXACIN
     Dosage: 2 EVERY 1 DAY
     Route: 065
  59. CIPROFLOXACIN [Suspect]
     Active Substance: CIPROFLOXACIN
     Dosage: CIPROFLOXACIN
     Route: 065
  60. CIPROFLOXACIN [Suspect]
     Active Substance: CIPROFLOXACIN
     Dosage: CIPROFLOXACIN HYDROCHLORIDE
     Route: 065
  61. CIPROFLOXACIN [Suspect]
     Active Substance: CIPROFLOXACIN
     Route: 065
  62. CIPROFLOXACIN [Suspect]
     Active Substance: CIPROFLOXACIN
     Route: 065
  63. CIPROFLOXACIN [Suspect]
     Active Substance: CIPROFLOXACIN
     Dosage: CIPROFLOXACIN HYDROCHLORIDE
     Route: 048
  64. CIPROFLOXACIN [Suspect]
     Active Substance: CIPROFLOXACIN
     Dosage: CIPROFLOXACIN HYDROCHLORIDE
     Route: 065
  65. CIPROFLOXACIN [Suspect]
     Active Substance: CIPROFLOXACIN
     Route: 065
  66. CIPROFLOXACIN [Suspect]
     Active Substance: CIPROFLOXACIN
     Dosage: CIPROFLOXACIN LACTATE
     Route: 065
  67. CIPROFLOXACIN [Suspect]
     Active Substance: CIPROFLOXACIN
     Dosage: CIPROFLOXACIN LACTATE
     Route: 065
  68. CIPROFLOXACIN [Suspect]
     Active Substance: CIPROFLOXACIN
     Dosage: CIPROFLOXACIN
     Route: 048
  69. CIPROFLOXACIN [Suspect]
     Active Substance: CIPROFLOXACIN
     Dosage: CIPROFLOXACIN
     Route: 065
  70. CIPROFLOXACIN [Suspect]
     Active Substance: CIPROFLOXACIN
     Dosage: CIPROFLOXACIN
     Route: 065
  71. CIPROFLOXACIN [Suspect]
     Active Substance: CIPROFLOXACIN
     Dosage: CIPROFLOXACIN HYDROCHLORIDE
     Route: 065
  72. CIPROFLOXACIN [Suspect]
     Active Substance: CIPROFLOXACIN
     Dosage: CIPROFLOXACIN HYDROCHLORIDE
     Route: 065
  73. CIPROFLOXACIN [Suspect]
     Active Substance: CIPROFLOXACIN
     Route: 065
  74. CIPROFLOXACIN [Suspect]
     Active Substance: CIPROFLOXACIN
     Route: 065
  75. CIPROFLOXACIN [Suspect]
     Active Substance: CIPROFLOXACIN
     Dosage: CIPROFLOXACIN
     Route: 048
  76. CIPROFLOXACIN [Suspect]
     Active Substance: CIPROFLOXACIN
     Route: 048
  77. CIPROFLOXACIN [Suspect]
     Active Substance: CIPROFLOXACIN
     Route: 048
  78. CIPROFLOXACIN [Suspect]
     Active Substance: CIPROFLOXACIN
     Dosage: CIPROFLOXACIN
     Route: 048
  79. CIPROFLOXACIN [Suspect]
     Active Substance: CIPROFLOXACIN
     Route: 065
  80. CIPROFLOXACIN [Suspect]
     Active Substance: CIPROFLOXACIN
     Route: 065
  81. CIPROFLOXACIN [Suspect]
     Active Substance: CIPROFLOXACIN
     Route: 065
  82. CIPROFLOXACIN [Suspect]
     Active Substance: CIPROFLOXACIN
     Dosage: CIPROFLOXACIN (4 ADMINISTRATIONS)
     Route: 048
  83. CIPROFLOXACIN [Suspect]
     Active Substance: CIPROFLOXACIN
     Dosage: CIPROFLOXACIN
     Route: 065
  84. CIPROFLOXACIN [Suspect]
     Active Substance: CIPROFLOXACIN
     Dosage: CIPROFLOXACIN
     Route: 065
  85. CIPROFLOXACIN [Suspect]
     Active Substance: CIPROFLOXACIN
     Dosage: CIPROFLOXACIN
     Route: 065
  86. CIPROFLOXACIN [Suspect]
     Active Substance: CIPROFLOXACIN
     Dosage: CIPROFLOXACIN
     Route: 065
  87. CIPROFLOXACIN [Suspect]
     Active Substance: CIPROFLOXACIN
     Route: 065
  88. CIPROFLOXACIN [Suspect]
     Active Substance: CIPROFLOXACIN
     Route: 065
  89. CIPROFLOXACIN [Suspect]
     Active Substance: CIPROFLOXACIN
     Dosage: CIPROFLOXACIN LACTATE
     Route: 065
  90. CIPROFLOXACIN [Suspect]
     Active Substance: CIPROFLOXACIN
     Dosage: CIPROFLOXACIN LACTATE
     Route: 065
  91. CIPROFLOXACIN [Suspect]
     Active Substance: CIPROFLOXACIN
     Route: 048
  92. CLARITHROMYCIN [Suspect]
     Active Substance: CLARITHROMYCIN
     Indication: Product used for unknown indication
     Dosage: NOT SPECIFIED (2 ADMINISTRATIONS)
     Route: 065
  93. CLARITHROMYCIN [Suspect]
     Active Substance: CLARITHROMYCIN
     Route: 065
  94. CLARITHROMYCIN [Suspect]
     Active Substance: CLARITHROMYCIN
     Route: 065
  95. CLARITHROMYCIN [Suspect]
     Active Substance: CLARITHROMYCIN
     Route: 065
  96. CLARITHROMYCIN [Suspect]
     Active Substance: CLARITHROMYCIN
     Dosage: NOT SPECIFIED
     Route: 065
  97. CLARITHROMYCIN [Suspect]
     Active Substance: CLARITHROMYCIN
     Dosage: NOT SPECIFIED
     Route: 065
  98. CLARITHROMYCIN [Suspect]
     Active Substance: CLARITHROMYCIN
     Route: 065
  99. CLARITHROMYCIN [Suspect]
     Active Substance: CLARITHROMYCIN
     Route: 065
  100. CODEINE [Suspect]
     Active Substance: CODEINE
     Indication: Migraine
     Route: 065
  101. CODEINE [Suspect]
     Active Substance: CODEINE
     Route: 065
  102. CODEINE [Suspect]
     Active Substance: CODEINE
     Route: 065
  103. CODEINE [Suspect]
     Active Substance: CODEINE
     Route: 065
  104. CODEINE [Suspect]
     Active Substance: CODEINE
     Route: 048
  105. CODEINE [Suspect]
     Active Substance: CODEINE
     Route: 048
  106. DULOXETINE [Suspect]
     Active Substance: DULOXETINE
     Indication: Migraine
     Route: 065
  107. DULOXETINE [Suspect]
     Active Substance: DULOXETINE
     Route: 065
  108. DULOXETINE [Suspect]
     Active Substance: DULOXETINE
     Route: 065
  109. DULOXETINE [Suspect]
     Active Substance: DULOXETINE
     Route: 065
  110. DULOXETINE [Suspect]
     Active Substance: DULOXETINE
     Route: 065
  111. FLUCONAZOLE [Suspect]
     Active Substance: FLUCONAZOLE
     Indication: Migraine
     Route: 065
  112. FLUCONAZOLE [Suspect]
     Active Substance: FLUCONAZOLE
     Route: 065
  113. FLUCONAZOLE [Suspect]
     Active Substance: FLUCONAZOLE
     Route: 065
  114. FLUCONAZOLE [Suspect]
     Active Substance: FLUCONAZOLE
     Route: 065
  115. FLUCONAZOLE [Suspect]
     Active Substance: FLUCONAZOLE
     Route: 065
  116. HYDROMORPHONE [Suspect]
     Active Substance: HYDROMORPHONE
     Indication: Migraine
     Dosage: 11 ADMINISTRATIONS
     Route: 065
  117. HYDROMORPHONE [Suspect]
     Active Substance: HYDROMORPHONE
     Indication: Product used for unknown indication
     Route: 065
  118. HYDROMORPHONE [Suspect]
     Active Substance: HYDROMORPHONE
     Route: 065
  119. HYDROMORPHONE [Suspect]
     Active Substance: HYDROMORPHONE
     Route: 065
  120. HYDROMORPHONE [Suspect]
     Active Substance: HYDROMORPHONE
     Route: 065
  121. HYDROMORPHONE [Suspect]
     Active Substance: HYDROMORPHONE
     Route: 065
  122. HYDROMORPHONE [Suspect]
     Active Substance: HYDROMORPHONE
     Route: 065
  123. HYDROMORPHONE [Suspect]
     Active Substance: HYDROMORPHONE
     Dosage: 1 ADMINISTRATION GIVEN
     Route: 065
  124. HYDROMORPHONE [Suspect]
     Active Substance: HYDROMORPHONE
     Route: 065
  125. HYDROMORPHONE [Suspect]
     Active Substance: HYDROMORPHONE
     Route: 065
  126. HYDROMORPHONE [Suspect]
     Active Substance: HYDROMORPHONE
     Route: 065
  127. HYDROMORPHONE [Suspect]
     Active Substance: HYDROMORPHONE
     Route: 065
  128. HYDROMORPHONE [Suspect]
     Active Substance: HYDROMORPHONE
     Route: 065
  129. HYDROMORPHONE [Suspect]
     Active Substance: HYDROMORPHONE
     Route: 065
  130. HYDROMORPHONE [Suspect]
     Active Substance: HYDROMORPHONE
     Route: 065
  131. HYDROMORPHONE [Suspect]
     Active Substance: HYDROMORPHONE
     Route: 005
  132. HYDROMORPHONE [Suspect]
     Active Substance: HYDROMORPHONE
     Dosage: HYDROMORPHONE HYDROCHLORIDE
     Route: 065
  133. HYDROMORPHONE [Suspect]
     Active Substance: HYDROMORPHONE
     Route: 065
  134. HYDROMORPHONE [Suspect]
     Active Substance: HYDROMORPHONE
     Route: 065
  135. HYDROMORPHONE [Suspect]
     Active Substance: HYDROMORPHONE
     Route: 065
  136. HYDROMORPHONE [Suspect]
     Active Substance: HYDROMORPHONE
     Route: 065
  137. HYDROMORPHONE [Suspect]
     Active Substance: HYDROMORPHONE
     Route: 065
  138. HYDROMORPHONE [Suspect]
     Active Substance: HYDROMORPHONE
     Route: 065
  139. HYDROMORPHONE [Suspect]
     Active Substance: HYDROMORPHONE
     Route: 065
  140. HYDROMORPHONE [Suspect]
     Active Substance: HYDROMORPHONE
     Dosage: HYDROMORPHONE
     Route: 065
  141. HYDROMORPHONE [Suspect]
     Active Substance: HYDROMORPHONE
     Dosage: HYDROMORPHONE
     Route: 065
  142. HYDROMORPHONE [Suspect]
     Active Substance: HYDROMORPHONE
     Route: 065
  143. HYDROMORPHONE [Suspect]
     Active Substance: HYDROMORPHONE
     Route: 065
  144. HYDROMORPHONE [Suspect]
     Active Substance: HYDROMORPHONE
     Dosage: HYDROMORPHONE HYDROCHLORIDE
     Route: 005
  145. HYDROMORPHONE [Suspect]
     Active Substance: HYDROMORPHONE
     Dosage: HYDROMORPHONE, 12 ADMINISTRATIONS GIVEN
     Route: 065
  146. HYDROMORPHONE [Suspect]
     Active Substance: HYDROMORPHONE
     Dosage: HYDROMORPHONE
     Route: 065
  147. HYDROMORPHONE [Suspect]
     Active Substance: HYDROMORPHONE
     Dosage: HYDROMORPHONE
     Route: 065
  148. HYDROMORPHONE [Suspect]
     Active Substance: HYDROMORPHONE
     Dosage: HYDROMORPHONE, 2 ADMINISTRATIONS GIVEN
     Route: 065
  149. HYDROMORPHONE [Suspect]
     Active Substance: HYDROMORPHONE
     Dosage: HYDROMORPHONE
     Route: 065
  150. HYDROMORPHONE [Suspect]
     Active Substance: HYDROMORPHONE
     Dosage: HYDROMORPHONE
     Route: 065
  151. HYDROMORPHONE [Suspect]
     Active Substance: HYDROMORPHONE
     Dosage: HYDROMORPHONE
     Route: 065
  152. HYDROMORPHONE [Suspect]
     Active Substance: HYDROMORPHONE
     Dosage: HYDROMORPHONE, 3 ADMINISTRATIONS GIVEN
     Route: 065
  153. HYDROMORPHONE [Suspect]
     Active Substance: HYDROMORPHONE
     Dosage: HYDROMORPHONE, 2 ADMINISTRATIONS GIVEN
     Route: 065
  154. HYDROMORPHONE [Suspect]
     Active Substance: HYDROMORPHONE
     Dosage: HYDROMORPHONE, 3 ADMINISTRATIONS GIVEN
     Route: 065
  155. HYDROMORPHONE [Suspect]
     Active Substance: HYDROMORPHONE
     Route: 065
  156. HYDROMORPHONE [Suspect]
     Active Substance: HYDROMORPHONE
     Route: 065
  157. HYDROMORPHONE [Suspect]
     Active Substance: HYDROMORPHONE
     Route: 065
  158. HYDROMORPHONE [Suspect]
     Active Substance: HYDROMORPHONE
     Route: 065
  159. HYDROMORPHONE [Suspect]
     Active Substance: HYDROMORPHONE
     Route: 065
  160. HYDROMORPHONE [Suspect]
     Active Substance: HYDROMORPHONE
     Route: 065
  161. HYDROMORPHONE [Suspect]
     Active Substance: HYDROMORPHONE
     Route: 065
  162. HYDROMORPHONE [Suspect]
     Active Substance: HYDROMORPHONE
     Route: 065
  163. HYDROMORPHONE [Suspect]
     Active Substance: HYDROMORPHONE
     Route: 065
  164. HYDROMORPHONE [Suspect]
     Active Substance: HYDROMORPHONE
     Route: 065
  165. HYDROMORPHONE [Suspect]
     Active Substance: HYDROMORPHONE
     Route: 065
  166. LISINOPRIL [Suspect]
     Active Substance: LISINOPRIL
     Indication: Migraine
     Route: 065
  167. LISINOPRIL [Suspect]
     Active Substance: LISINOPRIL
     Route: 065
  168. LISINOPRIL [Suspect]
     Active Substance: LISINOPRIL
     Route: 065
  169. LISINOPRIL [Suspect]
     Active Substance: LISINOPRIL
     Route: 065
  170. LISINOPRIL [Suspect]
     Active Substance: LISINOPRIL
     Route: 065
  171. LISINOPRIL [Suspect]
     Active Substance: LISINOPRIL
     Route: 065
  172. LISINOPRIL [Suspect]
     Active Substance: LISINOPRIL
     Route: 065
  173. LISINOPRIL [Suspect]
     Active Substance: LISINOPRIL
     Route: 048
  174. LISINOPRIL [Suspect]
     Active Substance: LISINOPRIL
     Route: 065
  175. LISINOPRIL [Suspect]
     Active Substance: LISINOPRIL
     Route: 048
  176. LISINOPRIL [Suspect]
     Active Substance: LISINOPRIL
     Route: 065
  177. LISINOPRIL [Suspect]
     Active Substance: LISINOPRIL
     Route: 048
  178. MOMETASONE [Suspect]
     Active Substance: MOMETASONE
     Indication: Migraine
     Dosage: MOMETASONE; SPRAY, METERED DOSE
     Route: 065
  179. MOMETASONE [Suspect]
     Active Substance: MOMETASONE
     Indication: Product used for unknown indication
     Dosage: MOMETASONE
     Route: 065
  180. MOMETASONE [Suspect]
     Active Substance: MOMETASONE
     Dosage: MOMETASONE
     Route: 065
  181. MOMETASONE [Suspect]
     Active Substance: MOMETASONE
     Route: 065
  182. MOMETASONE [Suspect]
     Active Substance: MOMETASONE
     Route: 065
  183. MOMETASONE [Suspect]
     Active Substance: MOMETASONE
     Route: 065
  184. MOMETASONE [Suspect]
     Active Substance: MOMETASONE
     Dosage: MOMETASONE FUROATE
     Route: 055
  185. MOMETASONE [Suspect]
     Active Substance: MOMETASONE
     Dosage: MOMETASONE FUROATE
     Route: 055
  186. MOMETASONE [Suspect]
     Active Substance: MOMETASONE
     Dosage: MOMETASONE FUROATE
     Route: 065
  187. MOMETASONE [Suspect]
     Active Substance: MOMETASONE
     Route: 065
  188. MOMETASONE [Suspect]
     Active Substance: MOMETASONE
     Dosage: MOMETASONE FUROATE
     Route: 065
  189. MOMETASONE [Suspect]
     Active Substance: MOMETASONE
     Dosage: MOMETASONE FUROATE
     Route: 065
  190. MOMETASONE [Suspect]
     Active Substance: MOMETASONE
     Dosage: MOMETASONE FUROATE
     Route: 065
  191. MOMETASONE [Suspect]
     Active Substance: MOMETASONE
     Route: 065
  192. MOMETASONE [Suspect]
     Active Substance: MOMETASONE
     Route: 065
  193. MOMETASONE [Suspect]
     Active Substance: MOMETASONE
     Dosage: MOMETASONE, 2 ADMINISTRATIONS GIVEN
     Route: 065
  194. MOMETASONE [Suspect]
     Active Substance: MOMETASONE
     Route: 065
  195. MOMETASONE [Suspect]
     Active Substance: MOMETASONE
     Dosage: MOMETASONE
     Route: 065
  196. MOMETASONE [Suspect]
     Active Substance: MOMETASONE
     Dosage: MOMETASONE
     Route: 065
  197. MOMETASONE [Suspect]
     Active Substance: MOMETASONE
     Route: 065
  198. RABEPRAZOLE [Suspect]
     Active Substance: RABEPRAZOLE
     Indication: Migraine
     Dosage: RABEPRAZOLE SODIUM
     Route: 065
  199. RABEPRAZOLE [Suspect]
     Active Substance: RABEPRAZOLE
     Indication: Product used for unknown indication
     Route: 065
  200. RABEPRAZOLE [Suspect]
     Active Substance: RABEPRAZOLE
     Route: 065
  201. RABEPRAZOLE [Suspect]
     Active Substance: RABEPRAZOLE
     Route: 065
  202. RABEPRAZOLE [Suspect]
     Active Substance: RABEPRAZOLE
     Route: 065
  203. RABEPRAZOLE [Suspect]
     Active Substance: RABEPRAZOLE
     Route: 065
  204. RABEPRAZOLE [Suspect]
     Active Substance: RABEPRAZOLE
     Route: 065
  205. RABEPRAZOLE [Suspect]
     Active Substance: RABEPRAZOLE
     Route: 065
  206. RABEPRAZOLE [Suspect]
     Active Substance: RABEPRAZOLE
     Route: 065
  207. RABEPRAZOLE [Suspect]
     Active Substance: RABEPRAZOLE
     Route: 065
  208. RABEPRAZOLE [Suspect]
     Active Substance: RABEPRAZOLE
     Route: 065
  209. RABEPRAZOLE [Suspect]
     Active Substance: RABEPRAZOLE
     Route: 065
  210. RABEPRAZOLE [Suspect]
     Active Substance: RABEPRAZOLE
     Route: 065
  211. RABEPRAZOLE [Suspect]
     Active Substance: RABEPRAZOLE
     Route: 065
  212. RABEPRAZOLE [Suspect]
     Active Substance: RABEPRAZOLE
     Route: 065
  213. RABEPRAZOLE [Suspect]
     Active Substance: RABEPRAZOLE
     Route: 065
  214. RABEPRAZOLE [Suspect]
     Active Substance: RABEPRAZOLE
     Route: 065
  215. RABEPRAZOLE [Suspect]
     Active Substance: RABEPRAZOLE
     Route: 065
  216. RABEPRAZOLE [Suspect]
     Active Substance: RABEPRAZOLE
     Route: 065
  217. RABEPRAZOLE [Suspect]
     Active Substance: RABEPRAZOLE
     Route: 065
  218. RABEPRAZOLE [Suspect]
     Active Substance: RABEPRAZOLE
     Route: 065
  219. RABEPRAZOLE [Suspect]
     Active Substance: RABEPRAZOLE
     Route: 065
  220. RABEPRAZOLE [Suspect]
     Active Substance: RABEPRAZOLE
     Route: 048
  221. RABEPRAZOLE [Suspect]
     Active Substance: RABEPRAZOLE
     Route: 048
  222. RABEPRAZOLE [Suspect]
     Active Substance: RABEPRAZOLE
     Dosage: RABEPRAZOLE
     Route: 048
  223. RABEPRAZOLE [Suspect]
     Active Substance: RABEPRAZOLE
     Dosage: RABEPRAZOLE
     Route: 048
  224. RABEPRAZOLE [Suspect]
     Active Substance: RABEPRAZOLE
     Route: 065
  225. RABEPRAZOLE [Suspect]
     Active Substance: RABEPRAZOLE
     Route: 048
  226. RABEPRAZOLE [Suspect]
     Active Substance: RABEPRAZOLE
     Dosage: RABEPRAZOLE
     Route: 065
  227. RABEPRAZOLE [Suspect]
     Active Substance: RABEPRAZOLE
     Dosage: RABEPRAZOLE
     Route: 065
  228. RABEPRAZOLE [Suspect]
     Active Substance: RABEPRAZOLE
     Dosage: RABEPRAZOLE
     Route: 065
  229. RABEPRAZOLE [Suspect]
     Active Substance: RABEPRAZOLE
     Route: 065
  230. RABEPRAZOLE [Suspect]
     Active Substance: RABEPRAZOLE
     Route: 048
  231. RABEPRAZOLE [Suspect]
     Active Substance: RABEPRAZOLE
     Dosage: RABEPRAZOLE SODIUM
     Route: 048
  232. RABEPRAZOLE [Suspect]
     Active Substance: RABEPRAZOLE
     Dosage: RABEPRAZOLE SODIUM
     Route: 065
  233. RABEPRAZOLE [Suspect]
     Active Substance: RABEPRAZOLE
     Route: 065
  234. RABEPRAZOLE [Suspect]
     Active Substance: RABEPRAZOLE
     Route: 065
  235. RABEPRAZOLE [Suspect]
     Active Substance: RABEPRAZOLE
     Dosage: RABEPRAZOLE
     Route: 065
  236. RABEPRAZOLE [Suspect]
     Active Substance: RABEPRAZOLE
     Dosage: RABEPRAZOLE
     Route: 065
  237. RABEPRAZOLE [Suspect]
     Active Substance: RABEPRAZOLE
     Dosage: RABEPRAZOLE, 2 ADMINISTRATIONS GIVEN
     Route: 065
  238. RABEPRAZOLE [Suspect]
     Active Substance: RABEPRAZOLE
     Dosage: RABEPRAZOLE
     Route: 065
  239. RABEPRAZOLE [Suspect]
     Active Substance: RABEPRAZOLE
     Dosage: RABEPRAZOLE
     Route: 065
  240. RABEPRAZOLE [Suspect]
     Active Substance: RABEPRAZOLE
     Dosage: RABEPRAZOLE
     Route: 065
  241. RABEPRAZOLE [Suspect]
     Active Substance: RABEPRAZOLE
     Dosage: RABEPRAZOLE, 2 ADMINISTRATIONS GIVEN
     Route: 065
  242. RABEPRAZOLE [Suspect]
     Active Substance: RABEPRAZOLE
     Dosage: RABEPRAZOLE, 2 ADMINISTRATIONS GIVEN
     Route: 065
  243. RABEPRAZOLE [Suspect]
     Active Substance: RABEPRAZOLE
     Dosage: RABEPRAZOLE, 2 ADMINISTRATIONS GIVEN
     Route: 065
  244. RABEPRAZOLE [Suspect]
     Active Substance: RABEPRAZOLE
     Dosage: RABEPRAZOLE, 2 ADMINISTRATIONS GIVEN
     Route: 065
  245. RABEPRAZOLE [Suspect]
     Active Substance: RABEPRAZOLE
     Dosage: RABEPRAZOLE, 2 ADMINISTRATIONS GIVEN
     Route: 065
  246. RABEPRAZOLE [Suspect]
     Active Substance: RABEPRAZOLE
     Dosage: RABEPRAZOLE, 2 ADMINISTRATIONS GIVEN
     Route: 065
  247. RABEPRAZOLE [Suspect]
     Active Substance: RABEPRAZOLE
     Dosage: RABEPRAZOLE, 2 ADMINISTRATIONS GIVEN
     Route: 065
  248. RABEPRAZOLE [Suspect]
     Active Substance: RABEPRAZOLE
     Route: 065
  249. RABEPRAZOLE [Suspect]
     Active Substance: RABEPRAZOLE
     Route: 065
  250. RABEPRAZOLE [Suspect]
     Active Substance: RABEPRAZOLE
     Route: 065
  251. RABEPRAZOLE [Suspect]
     Active Substance: RABEPRAZOLE
     Route: 065
  252. RABEPRAZOLE [Suspect]
     Active Substance: RABEPRAZOLE
     Route: 065
  253. RABEPRAZOLE [Suspect]
     Active Substance: RABEPRAZOLE
     Route: 065
  254. RABEPRAZOLE [Suspect]
     Active Substance: RABEPRAZOLE
     Route: 065
  255. RABEPRAZOLE [Suspect]
     Active Substance: RABEPRAZOLE
     Route: 065
  256. RABEPRAZOLE [Suspect]
     Active Substance: RABEPRAZOLE
     Route: 065
  257. RABEPRAZOLE [Suspect]
     Active Substance: RABEPRAZOLE
     Route: 065
  258. RABEPRAZOLE [Suspect]
     Active Substance: RABEPRAZOLE
     Route: 065
  259. RABEPRAZOLE [Suspect]
     Active Substance: RABEPRAZOLE
     Route: 065
  260. RABEPRAZOLE [Suspect]
     Active Substance: RABEPRAZOLE
     Route: 065
  261. RABEPRAZOLE [Suspect]
     Active Substance: RABEPRAZOLE
     Route: 065
  262. RABEPRAZOLE [Suspect]
     Active Substance: RABEPRAZOLE
     Route: 065
  263. RABEPRAZOLE [Suspect]
     Active Substance: RABEPRAZOLE
     Route: 065
  264. RABEPRAZOLE [Suspect]
     Active Substance: RABEPRAZOLE
     Route: 065
  265. RABEPRAZOLE [Suspect]
     Active Substance: RABEPRAZOLE
     Route: 065
  266. RABEPRAZOLE [Suspect]
     Active Substance: RABEPRAZOLE
     Route: 065
  267. TOPIRAMATE [Suspect]
     Active Substance: TOPIRAMATE
     Indication: Migraine
     Route: 065
  268. TOPIRAMATE [Suspect]
     Active Substance: TOPIRAMATE
     Indication: Product used for unknown indication
     Route: 065
  269. TRIMETHOPRIM [Suspect]
     Active Substance: TRIMETHOPRIM
     Indication: Product used for unknown indication
     Route: 065
  270. TRIMETHOPRIM [Suspect]
     Active Substance: TRIMETHOPRIM
     Route: 065
  271. TRIMETHOPRIM [Suspect]
     Active Substance: TRIMETHOPRIM
     Route: 065
  272. TRIMETHOPRIM [Suspect]
     Active Substance: TRIMETHOPRIM
     Route: 065
  273. ZOPICLONE [Suspect]
     Active Substance: ZOPICLONE
     Indication: Migraine
     Route: 065
  274. ZOPICLONE [Suspect]
     Active Substance: ZOPICLONE
     Route: 048
  275. ZOPICLONE [Suspect]
     Active Substance: ZOPICLONE
     Route: 065
  276. ZOPICLONE [Suspect]
     Active Substance: ZOPICLONE
     Route: 065
  277. ZOPICLONE [Suspect]
     Active Substance: ZOPICLONE
     Route: 065
  278. ZOPICLONE [Suspect]
     Active Substance: ZOPICLONE
     Route: 065
  279. ZOPICLONE [Suspect]
     Active Substance: ZOPICLONE
     Route: 065
  280. ZOPICLONE [Suspect]
     Active Substance: ZOPICLONE
     Route: 065
  281. ZOPICLONE [Suspect]
     Active Substance: ZOPICLONE
     Route: 065
  282. ZOPICLONE [Suspect]
     Active Substance: ZOPICLONE
     Route: 065
  283. ZOPICLONE [Suspect]
     Active Substance: ZOPICLONE
     Route: 065
  284. ZOPICLONE [Suspect]
     Active Substance: ZOPICLONE
     Route: 065
  285. ZOPICLONE [Suspect]
     Active Substance: ZOPICLONE
     Route: 065
  286. ZOPICLONE [Suspect]
     Active Substance: ZOPICLONE
     Route: 065
  287. ZOPICLONE [Suspect]
     Active Substance: ZOPICLONE
     Route: 065
  288. ZOPICLONE [Suspect]
     Active Substance: ZOPICLONE
     Route: 065
  289. ZOPICLONE [Suspect]
     Active Substance: ZOPICLONE
     Route: 065
  290. ZOPICLONE [Suspect]
     Active Substance: ZOPICLONE
     Route: 065
  291. ZOPICLONE [Suspect]
     Active Substance: ZOPICLONE
     Route: 065
  292. ZOPICLONE [Suspect]
     Active Substance: ZOPICLONE
     Route: 065
  293. ZOPICLONE [Suspect]
     Active Substance: ZOPICLONE
     Route: 065
  294. ZOPICLONE [Suspect]
     Active Substance: ZOPICLONE
     Route: 065
  295. ZOPICLONE [Suspect]
     Active Substance: ZOPICLONE
     Route: 065
  296. ZOPICLONE [Suspect]
     Active Substance: ZOPICLONE
     Route: 065
  297. ZOPICLONE [Suspect]
     Active Substance: ZOPICLONE
     Route: 065
  298. ZOPICLONE [Suspect]
     Active Substance: ZOPICLONE
     Route: 065
  299. ZOPICLONE [Suspect]
     Active Substance: ZOPICLONE
     Route: 065
  300. ZOPICLONE [Suspect]
     Active Substance: ZOPICLONE
     Route: 065
  301. ZOPICLONE [Suspect]
     Active Substance: ZOPICLONE
     Route: 065
  302. ZOPICLONE [Suspect]
     Active Substance: ZOPICLONE
     Route: 048
  303. ZOPICLONE [Suspect]
     Active Substance: ZOPICLONE
     Route: 065
  304. ZOPICLONE [Suspect]
     Active Substance: ZOPICLONE
     Route: 065
  305. ZOPICLONE [Suspect]
     Active Substance: ZOPICLONE
     Route: 065
  306. ZOPICLONE [Suspect]
     Active Substance: ZOPICLONE
     Route: 065
  307. ZOPICLONE [Suspect]
     Active Substance: ZOPICLONE
     Dosage: 19 ADMINISTRATIONS
     Route: 065
  308. ZOPICLONE [Suspect]
     Active Substance: ZOPICLONE
     Route: 065
  309. SUMATRIPTAN [Suspect]
     Active Substance: SUMATRIPTAN
     Indication: Migraine
     Route: 065
  310. SUMATRIPTAN [Suspect]
     Active Substance: SUMATRIPTAN
     Indication: Product used for unknown indication
     Route: 065
  311. SUMATRIPTAN [Suspect]
     Active Substance: SUMATRIPTAN
     Route: 065
  312. SUMATRIPTAN [Suspect]
     Active Substance: SUMATRIPTAN
     Route: 065
  313. SUMATRIPTAN [Suspect]
     Active Substance: SUMATRIPTAN
     Route: 065
  314. SUMATRIPTAN [Suspect]
     Active Substance: SUMATRIPTAN
     Route: 065
  315. SUMATRIPTAN [Suspect]
     Active Substance: SUMATRIPTAN
     Route: 065
  316. SUMATRIPTAN [Suspect]
     Active Substance: SUMATRIPTAN
     Route: 058
  317. SUMATRIPTAN [Suspect]
     Active Substance: SUMATRIPTAN
     Route: 065
  318. SUMATRIPTAN [Suspect]
     Active Substance: SUMATRIPTAN
     Route: 065
  319. SERTRALINE [Suspect]
     Active Substance: SERTRALINE HYDROCHLORIDE
     Indication: Migraine
     Route: 065
  320. SERTRALINE [Suspect]
     Active Substance: SERTRALINE HYDROCHLORIDE
     Route: 065
  321. SERTRALINE [Suspect]
     Active Substance: SERTRALINE HYDROCHLORIDE
     Route: 065
  322. SERTRALINE [Suspect]
     Active Substance: SERTRALINE HYDROCHLORIDE
     Route: 065
  323. SERTRALINE [Suspect]
     Active Substance: SERTRALINE HYDROCHLORIDE
     Route: 065
  324. PROPRANOLOL [Suspect]
     Active Substance: PROPRANOLOL HYDROCHLORIDE
     Indication: Migraine
     Route: 065
  325. PROPRANOLOL [Suspect]
     Active Substance: PROPRANOLOL HYDROCHLORIDE
     Indication: Product used for unknown indication
     Route: 065
  326. PROPRANOLOL [Suspect]
     Active Substance: PROPRANOLOL HYDROCHLORIDE
     Route: 048
  327. PROPRANOLOL [Suspect]
     Active Substance: PROPRANOLOL HYDROCHLORIDE
     Route: 048
  328. PROPRANOLOL [Suspect]
     Active Substance: PROPRANOLOL HYDROCHLORIDE
     Route: 065
  329. PROPRANOLOL [Suspect]
     Active Substance: PROPRANOLOL HYDROCHLORIDE
     Dosage: PROPRANOLOL (3 YEARS)
     Route: 065
  330. PROPRANOLOL [Suspect]
     Active Substance: PROPRANOLOL HYDROCHLORIDE
     Route: 065
  331. PROPRANOLOL [Suspect]
     Active Substance: PROPRANOLOL HYDROCHLORIDE
     Route: 065
  332. PROPRANOLOL [Suspect]
     Active Substance: PROPRANOLOL HYDROCHLORIDE
     Route: 065
  333. PROPRANOLOL [Suspect]
     Active Substance: PROPRANOLOL HYDROCHLORIDE
     Route: 065
  334. PROPRANOLOL [Suspect]
     Active Substance: PROPRANOLOL HYDROCHLORIDE
     Route: 048
  335. PROPRANOLOL [Suspect]
     Active Substance: PROPRANOLOL HYDROCHLORIDE
     Route: 065
  336. PROPRANOLOL [Suspect]
     Active Substance: PROPRANOLOL HYDROCHLORIDE
     Route: 048
  337. PROPRANOLOL [Suspect]
     Active Substance: PROPRANOLOL HYDROCHLORIDE
     Route: 065
  338. PROPRANOLOL [Suspect]
     Active Substance: PROPRANOLOL HYDROCHLORIDE
     Route: 048
  339. PROPRANOLOL [Suspect]
     Active Substance: PROPRANOLOL HYDROCHLORIDE
     Route: 048
  340. PROPRANOLOL [Suspect]
     Active Substance: PROPRANOLOL HYDROCHLORIDE
     Route: 048
  341. PROPRANOLOL [Suspect]
     Active Substance: PROPRANOLOL HYDROCHLORIDE
     Route: 065
  342. PROPRANOLOL [Suspect]
     Active Substance: PROPRANOLOL HYDROCHLORIDE
     Dosage: PROPRANOLOL
     Route: 065
  343. PROPRANOLOL [Suspect]
     Active Substance: PROPRANOLOL HYDROCHLORIDE
     Route: 065
  344. PROPRANOLOL [Suspect]
     Active Substance: PROPRANOLOL HYDROCHLORIDE
     Route: 065
  345. PROPRANOLOL [Suspect]
     Active Substance: PROPRANOLOL HYDROCHLORIDE
     Route: 048
  346. PROPRANOLOL [Suspect]
     Active Substance: PROPRANOLOL HYDROCHLORIDE
     Route: 048
  347. LANSOPRAZOLE [Suspect]
     Active Substance: LANSOPRAZOLE
     Indication: Migraine
     Route: 065
  348. LANSOPRAZOLE [Suspect]
     Active Substance: LANSOPRAZOLE
     Route: 065
  349. LANSOPRAZOLE [Suspect]
     Active Substance: LANSOPRAZOLE
     Route: 065
  350. ESCITALOPRAM [Suspect]
     Active Substance: ESCITALOPRAM OXALATE
     Indication: Migraine
     Route: 065
  351. ESCITALOPRAM [Suspect]
     Active Substance: ESCITALOPRAM OXALATE
     Route: 065
  352. ESCITALOPRAM [Suspect]
     Active Substance: ESCITALOPRAM OXALATE
     Route: 048
  353. ESCITALOPRAM [Suspect]
     Active Substance: ESCITALOPRAM OXALATE
     Route: 065
  354. RIZATRIPTAN BENZOATE [Suspect]
     Active Substance: RIZATRIPTAN BENZOATE
     Indication: Migraine
     Route: 065
  355. RIZATRIPTAN BENZOATE [Suspect]
     Active Substance: RIZATRIPTAN BENZOATE
     Indication: Product used for unknown indication
     Route: 065
  356. RIZATRIPTAN BENZOATE [Suspect]
     Active Substance: RIZATRIPTAN BENZOATE
     Route: 065
  357. RIZATRIPTAN BENZOATE [Suspect]
     Active Substance: RIZATRIPTAN BENZOATE
     Dosage: RIZATRIPTAN
     Route: 065
  358. RIZATRIPTAN BENZOATE [Suspect]
     Active Substance: RIZATRIPTAN BENZOATE
     Dosage: RIZATRIPTAN
     Route: 065
  359. RIZATRIPTAN BENZOATE [Suspect]
     Active Substance: RIZATRIPTAN BENZOATE
     Dosage: RIZATRIPTAN BENZOATE
     Route: 065
  360. RIZATRIPTAN BENZOATE [Suspect]
     Active Substance: RIZATRIPTAN BENZOATE
     Route: 065
  361. RIZATRIPTAN BENZOATE [Suspect]
     Active Substance: RIZATRIPTAN BENZOATE
     Route: 065
  362. RIZATRIPTAN BENZOATE [Suspect]
     Active Substance: RIZATRIPTAN BENZOATE
     Dosage: RIZATRIPTAN BENZOATE
     Route: 065
  363. RIZATRIPTAN BENZOATE [Suspect]
     Active Substance: RIZATRIPTAN BENZOATE
     Route: 065
  364. RIZATRIPTAN BENZOATE [Suspect]
     Active Substance: RIZATRIPTAN BENZOATE
     Dosage: RIZATRIPTAN
     Route: 065
  365. RIZATRIPTAN BENZOATE [Suspect]
     Active Substance: RIZATRIPTAN BENZOATE
     Dosage: RIZATRIPTAN, 2 ADMINISTRATIONS GIVEN
     Route: 065
  366. BOTULINUM TOXIN TYPE A [Suspect]
     Active Substance: BOTULINUM TOXIN TYPE A
     Indication: Product used for unknown indication
     Route: 065
  367. BOTULINUM TOXIN TYPE A [Suspect]
     Active Substance: BOTULINUM TOXIN TYPE A
     Route: 065
  368. BOTULINUM TOXIN TYPE A [Suspect]
     Active Substance: BOTULINUM TOXIN TYPE A
     Route: 065
  369. BOTULINUM TOXIN TYPE A [Suspect]
     Active Substance: BOTULINUM TOXIN TYPE A
     Route: 065
  370. BOTULINUM TOXIN TYPE A [Suspect]
     Active Substance: BOTULINUM TOXIN TYPE A
     Route: 065
  371. BOTULINUM TOXIN TYPE A [Suspect]
     Active Substance: BOTULINUM TOXIN TYPE A
     Route: 030
  372. BOTULINUM TOXIN TYPE A [Suspect]
     Active Substance: BOTULINUM TOXIN TYPE A
     Route: 065
  373. BOTULINUM TOXIN TYPE A [Suspect]
     Active Substance: BOTULINUM TOXIN TYPE A
     Route: 065
  374. BOTULINUM TOXIN TYPE A [Suspect]
     Active Substance: BOTULINUM TOXIN TYPE A
     Route: 065
  375. BOTULINUM TOXIN TYPE A [Suspect]
     Active Substance: BOTULINUM TOXIN TYPE A
     Route: 065
  376. BOTULINUM TOXIN TYPE A [Suspect]
     Active Substance: BOTULINUM TOXIN TYPE A
     Route: 065
  377. BOTULINUM TOXIN TYPE A [Suspect]
     Active Substance: BOTULINUM TOXIN TYPE A
     Route: 065
  378. BOTULINUM TOXIN TYPE A [Suspect]
     Active Substance: BOTULINUM TOXIN TYPE A
     Route: 065
  379. BOTULINUM TOXIN TYPE A [Suspect]
     Active Substance: BOTULINUM TOXIN TYPE A
     Route: 065
  380. BOTULINUM TOXIN TYPE A [Suspect]
     Active Substance: BOTULINUM TOXIN TYPE A
     Route: 065
  381. BOTULINUM TOXIN TYPE A [Suspect]
     Active Substance: BOTULINUM TOXIN TYPE A
     Route: 065
  382. BOTULINUM TOXIN TYPE A [Suspect]
     Active Substance: BOTULINUM TOXIN TYPE A
     Route: 065
  383. BOTULINUM TOXIN TYPE A [Suspect]
     Active Substance: BOTULINUM TOXIN TYPE A
     Route: 030
  384. BOTULINUM TOXIN TYPE A [Suspect]
     Active Substance: BOTULINUM TOXIN TYPE A
     Route: 065
  385. BOTULINUM TOXIN TYPE A [Suspect]
     Active Substance: BOTULINUM TOXIN TYPE A
     Route: 065
  386. BOTULINUM TOXIN TYPE A [Suspect]
     Active Substance: BOTULINUM TOXIN TYPE A
     Route: 065
  387. BOTULINUM TOXIN TYPE A [Suspect]
     Active Substance: BOTULINUM TOXIN TYPE A
     Route: 065
  388. BOTULINUM TOXIN TYPE A [Suspect]
     Active Substance: BOTULINUM TOXIN TYPE A
     Route: 065
  389. BOTULINUM TOXIN TYPE A [Suspect]
     Active Substance: BOTULINUM TOXIN TYPE A
     Route: 065
  390. BOTULINUM TOXIN TYPE A [Suspect]
     Active Substance: BOTULINUM TOXIN TYPE A
     Route: 065
  391. BOTULINUM TOXIN TYPE A [Suspect]
     Active Substance: BOTULINUM TOXIN TYPE A
     Route: 065
  392. AMOXICILLIN [Suspect]
     Active Substance: AMOXICILLIN
     Indication: Product used for unknown indication
     Route: 065
  393. AMOXICILLIN [Suspect]
     Active Substance: AMOXICILLIN
     Route: 065
  394. AMOXICILLIN [Suspect]
     Active Substance: AMOXICILLIN
     Dosage: AMOXICILLIN TRIHYDRATE
     Route: 065
  395. AMOXICILLIN [Suspect]
     Active Substance: AMOXICILLIN
     Route: 065
  396. AMOXICILLIN [Suspect]
     Active Substance: AMOXICILLIN
     Route: 065
  397. AMOXICILLIN [Suspect]
     Active Substance: AMOXICILLIN
     Route: 065
  398. AMOXICILLIN [Suspect]
     Active Substance: AMOXICILLIN
     Dosage: AMOXICILLIN TRIHYDRATE
     Route: 065
  399. AMOXICILLIN [Suspect]
     Active Substance: AMOXICILLIN
     Dosage: AMOXICILLIN TRIHYDRATE
     Route: 065
  400. AMOXICILLIN [Suspect]
     Active Substance: AMOXICILLIN
     Dosage: AMOXICILLIN
     Route: 065
  401. AMOXICILLIN [Suspect]
     Active Substance: AMOXICILLIN
     Dosage: AMOXICILLIN
     Route: 065
  402. AMOXICILLIN [Suspect]
     Active Substance: AMOXICILLIN
     Route: 065
  403. AMOXICILLIN [Suspect]
     Active Substance: AMOXICILLIN
     Route: 065
  404. AMOXICILLIN [Suspect]
     Active Substance: AMOXICILLIN
     Dosage: AMOXICILLIN TRIHYDRATE
     Route: 065
  405. AMOXICILLIN [Suspect]
     Active Substance: AMOXICILLIN
     Dosage: AMOXICILLIN TRIHYDRATE,
     Route: 065
  406. AMOXICILLIN [Suspect]
     Active Substance: AMOXICILLIN
     Dosage: AMOXICILLIN TRIHYDRATE
     Route: 065
  407. AMOXICILLIN [Suspect]
     Active Substance: AMOXICILLIN
     Dosage: AMOXICILLIN TRIHYDRATE
     Route: 065
  408. AMOXICILLIN [Suspect]
     Active Substance: AMOXICILLIN
     Route: 065
  409. AMOXICILLIN [Suspect]
     Active Substance: AMOXICILLIN
     Route: 065
  410. AMOXICILLIN [Suspect]
     Active Substance: AMOXICILLIN
     Dosage: AMOXICILLIN SODIUM
     Route: 065
  411. AMOXICILLIN [Suspect]
     Active Substance: AMOXICILLIN
     Dosage: AMOXICILLIN SODIUM
     Route: 065
  412. AMOXICILLIN [Suspect]
     Active Substance: AMOXICILLIN
     Dosage: AMOXICILLIN SODIUM
     Route: 065
  413. AMOXICILLIN [Suspect]
     Active Substance: AMOXICILLIN
     Route: 065
  414. AMOXICILLIN [Suspect]
     Active Substance: AMOXICILLIN
     Route: 065
  415. METOCLOPRAMIDE [Suspect]
     Active Substance: METOCLOPRAMIDE
     Indication: Migraine
     Route: 065
  416. METOCLOPRAMIDE [Suspect]
     Active Substance: METOCLOPRAMIDE
     Route: 065
  417. METOCLOPRAMIDE [Suspect]
     Active Substance: METOCLOPRAMIDE
     Route: 065
  418. METOCLOPRAMIDE [Suspect]
     Active Substance: METOCLOPRAMIDE
     Route: 065
  419. METOCLOPRAMIDE [Suspect]
     Active Substance: METOCLOPRAMIDE
     Route: 065
  420. METOCLOPRAMIDE [Suspect]
     Active Substance: METOCLOPRAMIDE
     Route: 065
  421. METOCLOPRAMIDE [Suspect]
     Active Substance: METOCLOPRAMIDE
     Route: 065
  422. METOCLOPRAMIDE [Suspect]
     Active Substance: METOCLOPRAMIDE
     Route: 065
  423. METOCLOPRAMIDE [Suspect]
     Active Substance: METOCLOPRAMIDE
     Route: 065
  424. METOCLOPRAMIDE [Suspect]
     Active Substance: METOCLOPRAMIDE
     Route: 065
  425. METOCLOPRAMIDE [Suspect]
     Active Substance: METOCLOPRAMIDE
     Route: 065
  426. METOCLOPRAMIDE [Suspect]
     Active Substance: METOCLOPRAMIDE
     Route: 065
  427. METOCLOPRAMIDE [Suspect]
     Active Substance: METOCLOPRAMIDE
     Route: 065
  428. TRAMADOL HYDROCHLORIDE [Suspect]
     Active Substance: TRAMADOL HYDROCHLORIDE
     Indication: Product used for unknown indication
     Route: 065
  429. TRAMADOL HYDROCHLORIDE [Suspect]
     Active Substance: TRAMADOL HYDROCHLORIDE
     Route: 048
  430. DEXAMETHASONE [Suspect]
     Active Substance: DEXAMETHASONE
     Indication: Migraine
     Route: 065
  431. DEXAMETHASONE [Suspect]
     Active Substance: DEXAMETHASONE
     Route: 048
  432. DEXAMETHASONE [Suspect]
     Active Substance: DEXAMETHASONE
     Route: 065
  433. DEXAMETHASONE [Suspect]
     Active Substance: DEXAMETHASONE
     Route: 065
  434. DEXAMETHASONE [Suspect]
     Active Substance: DEXAMETHASONE
     Route: 065
  435. DEXAMETHASONE [Suspect]
     Active Substance: DEXAMETHASONE
     Route: 065
  436. DEXAMETHASONE [Suspect]
     Active Substance: DEXAMETHASONE
     Dosage: DEXAMETHASONE SODIUM PHOSPHATE
     Route: 065
  437. DEXAMETHASONE [Suspect]
     Active Substance: DEXAMETHASONE
     Route: 065
  438. ZOLMITRIPTAN [Suspect]
     Active Substance: ZOLMITRIPTAN
     Indication: Migraine
     Route: 065
  439. ZOLMITRIPTAN [Suspect]
     Active Substance: ZOLMITRIPTAN
     Route: 065
  440. ZOLMITRIPTAN [Suspect]
     Active Substance: ZOLMITRIPTAN
     Route: 065
  441. ZOLMITRIPTAN [Suspect]
     Active Substance: ZOLMITRIPTAN
     Route: 065
  442. ZOLMITRIPTAN [Suspect]
     Active Substance: ZOLMITRIPTAN
     Route: 065
  443. ZOLMITRIPTAN [Suspect]
     Active Substance: ZOLMITRIPTAN
     Route: 065
  444. SCOPOLAMINE [Suspect]
     Active Substance: SCOPOLAMINE
     Indication: Migraine
     Route: 065
  445. SCOPOLAMINE [Suspect]
     Active Substance: SCOPOLAMINE
     Route: 065
  446. SCOPOLAMINE [Suspect]
     Active Substance: SCOPOLAMINE
     Route: 065
  447. SCOPOLAMINE [Suspect]
     Active Substance: SCOPOLAMINE
     Route: 065
  448. SCOPOLAMINE [Suspect]
     Active Substance: SCOPOLAMINE
     Route: 065
  449. SCOPOLAMINE [Suspect]
     Active Substance: SCOPOLAMINE
     Dosage: HYOSCINE BUTYLBROMIDE
     Route: 065
  450. SCOPOLAMINE [Suspect]
     Active Substance: SCOPOLAMINE
     Dosage: HYOSCINE BUTYLBROMIDE
     Route: 065
  451. SCOPOLAMINE [Suspect]
     Active Substance: SCOPOLAMINE
     Route: 065
  452. SCOPOLAMINE [Suspect]
     Active Substance: SCOPOLAMINE
     Route: 065
  453. SCOPOLAMINE [Suspect]
     Active Substance: SCOPOLAMINE
     Dosage: HYOSCINE BUTYLBROMIDE
     Route: 065
  454. ACETAMINOPHEN\BUTYLSCOPOLAMINE BROMIDE [Suspect]
     Active Substance: ACETAMINOPHEN\BUTYLSCOPOLAMINE BROMIDE
     Indication: Migraine
     Route: 065
  455. INDOMETHACIN [Suspect]
     Active Substance: INDOMETHACIN
     Indication: Migraine
     Dosage: 26 ADMINISTRATIONS
     Route: 054
  456. INDOMETHACIN [Suspect]
     Active Substance: INDOMETHACIN
     Route: 054
  457. INDOMETHACIN [Suspect]
     Active Substance: INDOMETHACIN
     Route: 054
  458. INDOMETHACIN [Suspect]
     Active Substance: INDOMETHACIN
     Route: 054
  459. INDOMETHACIN [Suspect]
     Active Substance: INDOMETHACIN
     Route: 054
  460. INDOMETHACIN [Suspect]
     Active Substance: INDOMETHACIN
     Route: 054
  461. INDOMETHACIN [Suspect]
     Active Substance: INDOMETHACIN
     Route: 054
  462. INDOMETHACIN [Suspect]
     Active Substance: INDOMETHACIN
     Route: 054
  463. INDOMETHACIN [Suspect]
     Active Substance: INDOMETHACIN
     Route: 054
  464. INDOMETHACIN [Suspect]
     Active Substance: INDOMETHACIN
     Route: 054
  465. INDOMETHACIN [Suspect]
     Active Substance: INDOMETHACIN
     Route: 054
  466. INDOMETHACIN [Suspect]
     Active Substance: INDOMETHACIN
     Route: 054
  467. INDOMETHACIN [Suspect]
     Active Substance: INDOMETHACIN
     Route: 054
  468. INDOMETHACIN [Suspect]
     Active Substance: INDOMETHACIN
     Route: 065
  469. INDOMETHACIN [Suspect]
     Active Substance: INDOMETHACIN
     Route: 054
  470. INDOMETHACIN [Suspect]
     Active Substance: INDOMETHACIN
     Route: 054
  471. INDOMETHACIN [Suspect]
     Active Substance: INDOMETHACIN
     Route: 065
  472. INDOMETHACIN [Suspect]
     Active Substance: INDOMETHACIN
     Route: 054
  473. INDOMETHACIN [Suspect]
     Active Substance: INDOMETHACIN
     Route: 054
  474. INDOMETHACIN [Suspect]
     Active Substance: INDOMETHACIN
     Route: 054
  475. INDOMETHACIN [Suspect]
     Active Substance: INDOMETHACIN
     Route: 065
  476. INDOMETHACIN [Suspect]
     Active Substance: INDOMETHACIN
     Route: 065
  477. INDOMETHACIN [Suspect]
     Active Substance: INDOMETHACIN
     Route: 054
  478. INDOMETHACIN [Suspect]
     Active Substance: INDOMETHACIN
     Dosage: INDOMETHACIN
     Route: 054
  479. INDOMETHACIN [Suspect]
     Active Substance: INDOMETHACIN
     Dosage: INDOMETHACIN
     Route: 054
  480. INDOMETHACIN [Suspect]
     Active Substance: INDOMETHACIN
     Dosage: INDOMETHACIN
     Route: 054
  481. INDOMETHACIN [Suspect]
     Active Substance: INDOMETHACIN
     Dosage: INDOMETHACIN
     Route: 054
  482. INDOMETHACIN [Suspect]
     Active Substance: INDOMETHACIN
     Dosage: INDOMETHACIN
     Route: 054
  483. INDOMETHACIN [Suspect]
     Active Substance: INDOMETHACIN
     Dosage: INDOMETHACIN
     Route: 054
  484. INDOMETHACIN [Suspect]
     Active Substance: INDOMETHACIN
     Dosage: INDOMETHACIN
     Route: 054
  485. INDOMETHACIN [Suspect]
     Active Substance: INDOMETHACIN
     Dosage: INDOMETHACIN
     Route: 054
  486. INDOMETHACIN [Suspect]
     Active Substance: INDOMETHACIN
     Dosage: INDOMETHACIN
     Route: 054
  487. INDOMETHACIN [Suspect]
     Active Substance: INDOMETHACIN
     Dosage: INDOMETHACIN
     Route: 054
  488. INDOMETHACIN [Suspect]
     Active Substance: INDOMETHACIN
     Dosage: INDOMETHACIN
     Route: 054
  489. INDOMETHACIN [Suspect]
     Active Substance: INDOMETHACIN
     Dosage: INDOMETHACIN
     Route: 054
  490. INDOMETHACIN [Suspect]
     Active Substance: INDOMETHACIN
     Dosage: INDOMETHACIN
     Route: 054
  491. INDOMETHACIN [Suspect]
     Active Substance: INDOMETHACIN
     Dosage: INDOMETHACIN
     Route: 054
  492. INDOMETHACIN [Suspect]
     Active Substance: INDOMETHACIN
     Dosage: INDOMETHACIN
     Route: 054
  493. INDOMETHACIN [Suspect]
     Active Substance: INDOMETHACIN
     Route: 054
  494. INDOMETHACIN [Suspect]
     Active Substance: INDOMETHACIN
     Route: 054
  495. INDOMETHACIN [Suspect]
     Active Substance: INDOMETHACIN
     Route: 054
  496. RABEPRAZOLE SODIUM [Suspect]
     Active Substance: RABEPRAZOLE SODIUM
     Indication: Migraine
     Route: 065
  497. CLOTRIMAZOLE\FLUCONAZOLE [Suspect]
     Active Substance: CLOTRIMAZOLE\FLUCONAZOLE
     Indication: Product used for unknown indication
     Route: 065
  498. CLOTRIMAZOLE\FLUCONAZOLE [Suspect]
     Active Substance: CLOTRIMAZOLE\FLUCONAZOLE
     Route: 065
  499. CLOTRIMAZOLE\FLUCONAZOLE [Suspect]
     Active Substance: CLOTRIMAZOLE\FLUCONAZOLE
     Route: 065
  500. ESOMEPRAZOLE [Suspect]
     Active Substance: ESOMEPRAZOLE
     Indication: Migraine
     Route: 065
  501. ESOMEPRAZOLE [Suspect]
     Active Substance: ESOMEPRAZOLE
     Route: 065
  502. ESOMEPRAZOLE [Suspect]
     Active Substance: ESOMEPRAZOLE
     Route: 048
  503. ESOMEPRAZOLE [Suspect]
     Active Substance: ESOMEPRAZOLE
     Route: 065
  504. ACETAMINOPHEN\DIPHENHYDRAMINE HYDROCHLORIDE [Suspect]
     Active Substance: ACETAMINOPHEN\DIPHENHYDRAMINE HYDROCHLORIDE
     Indication: Product used for unknown indication
     Route: 065
  505. METRONIDAZOLE [Suspect]
     Active Substance: METRONIDAZOLE
     Indication: Product used for unknown indication
     Route: 065
  506. METRONIDAZOLE [Suspect]
     Active Substance: METRONIDAZOLE
     Indication: Migraine
  507. CLOTRIMAZOLE [Suspect]
     Active Substance: CLOTRIMAZOLE
     Indication: Product used for unknown indication
     Route: 065
  508. MAXALT [Suspect]
     Active Substance: RIZATRIPTAN BENZOATE
     Indication: Product used for unknown indication
     Route: 065
  509. MAXALT [Suspect]
     Active Substance: RIZATRIPTAN BENZOATE
     Indication: Migraine
     Route: 065
  510. MAXALT [Suspect]
     Active Substance: RIZATRIPTAN BENZOATE
     Route: 065
  511. MAXALT [Suspect]
     Active Substance: RIZATRIPTAN BENZOATE
     Route: 065
  512. MAXALT [Suspect]
     Active Substance: RIZATRIPTAN BENZOATE
     Route: 065
  513. SCOPOLAMINE HYDROBROMIDE [Suspect]
     Active Substance: SCOPOLAMINE HYDROBROMIDE
     Indication: Product used for unknown indication
     Route: 065
  514. SCOPOLAMINE HYDROBROMIDE [Suspect]
     Active Substance: SCOPOLAMINE HYDROBROMIDE
     Route: 065
  515. SCOPOLAMINE HYDROBROMIDE [Suspect]
     Active Substance: SCOPOLAMINE HYDROBROMIDE
     Route: 065
  516. SCOPOLAMINE HYDROBROMIDE [Suspect]
     Active Substance: SCOPOLAMINE HYDROBROMIDE
     Route: 065
  517. CYMBALTA [Suspect]
     Active Substance: DULOXETINE HYDROCHLORIDE
     Indication: Product used for unknown indication
     Route: 065
  518. CYMBALTA [Suspect]
     Active Substance: DULOXETINE HYDROCHLORIDE
     Route: 065
  519. CYMBALTA [Suspect]
     Active Substance: DULOXETINE HYDROCHLORIDE
     Route: 065
  520. CYMBALTA [Suspect]
     Active Substance: DULOXETINE HYDROCHLORIDE
     Route: 065
  521. CYMBALTA [Suspect]
     Active Substance: DULOXETINE HYDROCHLORIDE
     Route: 065
  522. CYMBALTA [Suspect]
     Active Substance: DULOXETINE HYDROCHLORIDE
     Route: 065
  523. CYMBALTA [Suspect]
     Active Substance: DULOXETINE HYDROCHLORIDE
     Route: 065
  524. CYMBALTA [Suspect]
     Active Substance: DULOXETINE HYDROCHLORIDE
     Route: 065
  525. CYMBALTA [Suspect]
     Active Substance: DULOXETINE HYDROCHLORIDE
     Route: 065
  526. CYMBALTA [Suspect]
     Active Substance: DULOXETINE HYDROCHLORIDE
     Route: 065
  527. CYMBALTA [Suspect]
     Active Substance: DULOXETINE HYDROCHLORIDE
     Route: 065
  528. CYMBALTA [Suspect]
     Active Substance: DULOXETINE HYDROCHLORIDE
     Route: 065
  529. CYMBALTA [Suspect]
     Active Substance: DULOXETINE HYDROCHLORIDE
     Route: 065
  530. CYMBALTA [Suspect]
     Active Substance: DULOXETINE HYDROCHLORIDE
     Route: 065
  531. CYMBALTA [Suspect]
     Active Substance: DULOXETINE HYDROCHLORIDE
     Route: 065
  532. CYMBALTA [Suspect]
     Active Substance: DULOXETINE HYDROCHLORIDE
     Route: 065
  533. CYMBALTA [Suspect]
     Active Substance: DULOXETINE HYDROCHLORIDE
     Route: 065
  534. CYMBALTA [Suspect]
     Active Substance: DULOXETINE HYDROCHLORIDE
     Dosage: NOT SPECIFIED
     Route: 065
  535. CYMBALTA [Suspect]
     Active Substance: DULOXETINE HYDROCHLORIDE
     Route: 065
  536. CYMBALTA [Suspect]
     Active Substance: DULOXETINE HYDROCHLORIDE
     Route: 065
  537. LISINOPRIL [Suspect]
     Active Substance: LISINOPRIL
     Indication: Product used for unknown indication
     Route: 065
  538. LISINOPRIL [Suspect]
     Active Substance: LISINOPRIL
     Route: 065
  539. LISINOPRIL [Suspect]
     Active Substance: LISINOPRIL
     Route: 065
  540. LISINOPRIL [Suspect]
     Active Substance: LISINOPRIL
     Route: 065
  541. LISINOPRIL [Suspect]
     Active Substance: LISINOPRIL
     Route: 065
  542. LISINOPRIL [Suspect]
     Active Substance: LISINOPRIL
     Route: 065
  543. LISINOPRIL [Suspect]
     Active Substance: LISINOPRIL
     Route: 065
  544. AZITHROMYCIN ANHYDROUS [Suspect]
     Active Substance: AZITHROMYCIN ANHYDROUS
     Indication: Migraine
     Route: 065
  545. AZITHROMYCIN ANHYDROUS [Suspect]
     Active Substance: AZITHROMYCIN ANHYDROUS
     Route: 065
  546. AZITHROMYCIN ANHYDROUS [Suspect]
     Active Substance: AZITHROMYCIN ANHYDROUS
     Route: 065
  547. AZITHROMYCIN ANHYDROUS [Suspect]
     Active Substance: AZITHROMYCIN ANHYDROUS
     Route: 065
  548. AZITHROMYCIN ANHYDROUS [Suspect]
     Active Substance: AZITHROMYCIN ANHYDROUS
     Route: 065
  549. AZITHROMYCIN ANHYDROUS [Suspect]
     Active Substance: AZITHROMYCIN ANHYDROUS
     Route: 065
  550. AZITHROMYCIN ANHYDROUS [Suspect]
     Active Substance: AZITHROMYCIN ANHYDROUS
     Route: 065
  551. AZITHROMYCIN ANHYDROUS [Suspect]
     Active Substance: AZITHROMYCIN ANHYDROUS
     Route: 065
  552. DULOXETINE [Suspect]
     Active Substance: DULOXETINE
     Indication: Migraine
     Route: 065
  553. DULOXETINE [Suspect]
     Active Substance: DULOXETINE
     Indication: Product used for unknown indication
     Route: 065
  554. PREDNISONE [Suspect]
     Active Substance: PREDNISONE
     Indication: Product used for unknown indication
     Dosage: PREDNISONE
     Route: 065
  555. PREDNISONE [Suspect]
     Active Substance: PREDNISONE
     Route: 065
  556. PREDNISONE [Suspect]
     Active Substance: PREDNISONE
     Dosage: PREDNISONE
     Route: 065
  557. ACETAMINOPHEN\TRAMADOL HYDROCHLORIDE [Suspect]
     Active Substance: ACETAMINOPHEN\TRAMADOL HYDROCHLORIDE
     Indication: Product used for unknown indication
     Route: 065
  558. ACETAMINOPHEN\TRAMADOL HYDROCHLORIDE [Suspect]
     Active Substance: ACETAMINOPHEN\TRAMADOL HYDROCHLORIDE
     Route: 065
  559. ACETAMINOPHEN\METOCLOPRAMIDE HYDROCHLORIDE [Suspect]
     Active Substance: ACETAMINOPHEN\METOCLOPRAMIDE HYDROCHLORIDE
     Indication: Migraine
     Route: 065
  560. ACETAMINOPHEN\CODEINE PHOSPHATE [Suspect]
     Active Substance: ACETAMINOPHEN\CODEINE PHOSPHATE
     Indication: Product used for unknown indication
     Route: 065
  561. ACETAMINOPHEN\CODEINE PHOSPHATE [Suspect]
     Active Substance: ACETAMINOPHEN\CODEINE PHOSPHATE
     Route: 065
  562. ALBUTEROL [Suspect]
     Active Substance: ALBUTEROL
     Indication: Product used for unknown indication
     Route: 065
  563. ALBUTEROL [Suspect]
     Active Substance: ALBUTEROL
     Route: 065
  564. ALBUTEROL [Suspect]
     Active Substance: ALBUTEROL
     Route: 065
  565. INDOMETHACIN [Suspect]
     Active Substance: INDOMETHACIN
     Indication: Migraine
     Route: 054
  566. INDOMETHACIN [Suspect]
     Active Substance: INDOMETHACIN
     Route: 054
  567. INDOMETHACIN [Suspect]
     Active Substance: INDOMETHACIN
     Route: 054
  568. INDOMETHACIN [Suspect]
     Active Substance: INDOMETHACIN
     Route: 054
  569. INDOMETHACIN [Suspect]
     Active Substance: INDOMETHACIN
     Route: 054
  570. INDOMETHACIN [Suspect]
     Active Substance: INDOMETHACIN
     Route: 054
  571. INDOMETHACIN [Suspect]
     Active Substance: INDOMETHACIN
     Route: 054
  572. INDOMETHACIN [Suspect]
     Active Substance: INDOMETHACIN
     Route: 054
  573. INDOMETHACIN [Suspect]
     Active Substance: INDOMETHACIN
     Route: 054
  574. INDOMETHACIN [Suspect]
     Active Substance: INDOMETHACIN
     Route: 054
  575. INDOMETHACIN [Suspect]
     Active Substance: INDOMETHACIN
     Route: 054
  576. INDOMETHACIN [Suspect]
     Active Substance: INDOMETHACIN
     Route: 054
  577. INDOMETHACIN [Suspect]
     Active Substance: INDOMETHACIN
     Route: 054
  578. INDOMETHACIN [Suspect]
     Active Substance: INDOMETHACIN
     Route: 054
  579. INDOMETHACIN [Suspect]
     Active Substance: INDOMETHACIN
     Route: 054
  580. INDOMETHACIN [Suspect]
     Active Substance: INDOMETHACIN
     Route: 054
  581. INDOMETHACIN [Suspect]
     Active Substance: INDOMETHACIN
     Route: 054
  582. INDOMETHACIN [Suspect]
     Active Substance: INDOMETHACIN
     Route: 054
  583. INDOMETHACIN [Suspect]
     Active Substance: INDOMETHACIN
     Route: 054
  584. INDOMETHACIN [Suspect]
     Active Substance: INDOMETHACIN
     Route: 054
  585. INDOMETHACIN [Suspect]
     Active Substance: INDOMETHACIN
     Route: 054
  586. INDOMETHACIN [Suspect]
     Active Substance: INDOMETHACIN
     Route: 054
  587. INDOMETHACIN [Suspect]
     Active Substance: INDOMETHACIN
     Route: 054
  588. INDOMETHACIN [Suspect]
     Active Substance: INDOMETHACIN
     Route: 054
  589. INDOMETHACIN [Suspect]
     Active Substance: INDOMETHACIN
     Route: 054
  590. INDOMETHACIN [Suspect]
     Active Substance: INDOMETHACIN
     Route: 054
  591. INDOMETHACIN [Suspect]
     Active Substance: INDOMETHACIN
     Route: 054
  592. INDOMETHACIN [Suspect]
     Active Substance: INDOMETHACIN
     Route: 054
  593. INDOMETHACIN [Suspect]
     Active Substance: INDOMETHACIN
     Route: 065
  594. INDOMETHACIN [Suspect]
     Active Substance: INDOMETHACIN
     Route: 054
  595. INDOMETHACIN [Suspect]
     Active Substance: INDOMETHACIN
     Route: 054
  596. INDOMETHACIN [Suspect]
     Active Substance: INDOMETHACIN
     Route: 054
  597. INDOMETHACIN [Suspect]
     Active Substance: INDOMETHACIN
     Route: 054
  598. INDOMETHACIN [Suspect]
     Active Substance: INDOMETHACIN
     Route: 054
  599. INDOMETHACIN [Suspect]
     Active Substance: INDOMETHACIN
     Route: 054
  600. INDOMETHACIN [Suspect]
     Active Substance: INDOMETHACIN
     Route: 054
  601. INDOMETHACIN [Suspect]
     Active Substance: INDOMETHACIN
     Route: 054
  602. INDOMETHACIN [Suspect]
     Active Substance: INDOMETHACIN
     Route: 054
  603. INDOMETHACIN [Suspect]
     Active Substance: INDOMETHACIN
     Route: 054
  604. INDOMETHACIN [Suspect]
     Active Substance: INDOMETHACIN
     Route: 054
  605. INDOMETHACIN [Suspect]
     Active Substance: INDOMETHACIN
     Route: 054
  606. CLOTRIMAZOLE\FLUCONAZOLE [Suspect]
     Active Substance: CLOTRIMAZOLE\FLUCONAZOLE
     Indication: Product used for unknown indication
     Route: 065
  607. FLUOXETINE [Suspect]
     Active Substance: FLUOXETINE HYDROCHLORIDE
     Indication: Product used for unknown indication
     Route: 065
  608. FLUOXETINE [Suspect]
     Active Substance: FLUOXETINE HYDROCHLORIDE
     Route: 065
  609. FLUOXETINE [Suspect]
     Active Substance: FLUOXETINE HYDROCHLORIDE
     Route: 065
  610. FLUOXETINE [Suspect]
     Active Substance: FLUOXETINE HYDROCHLORIDE
     Dosage: FLUOXETINE HYDROCHLORIDE
     Route: 065
  611. ZESTRIL [Suspect]
     Active Substance: LISINOPRIL
     Indication: Product used for unknown indication
     Route: 048
  612. ZESTRIL [Suspect]
     Active Substance: LISINOPRIL
     Dosage: 2 ADMINISTRATIONS
     Route: 048
  613. ZESTRIL [Suspect]
     Active Substance: LISINOPRIL
     Route: 065
  614. ACECLOFENAC;TRAMADOL HYDROCHLORIDE [Concomitant]
     Indication: Product used for unknown indication
     Route: 065
  615. ACECLOFENAC;TRAMADOL HYDROCHLORIDE [Concomitant]
  616. ACETAMINOPHEN\CODEINE PHOSPHATE [Concomitant]
     Active Substance: ACETAMINOPHEN\CODEINE PHOSPHATE
     Indication: Product used for unknown indication
     Route: 065
  617. ACETAMINOPHEN\CODEINE PHOSPHATE [Concomitant]
     Active Substance: ACETAMINOPHEN\CODEINE PHOSPHATE
     Dosage: ACETAMINOPHEN/CODEINE PHOSPHATE
     Route: 065
  618. ACETAMINOPHEN\CODEINE PHOSPHATE [Concomitant]
     Active Substance: ACETAMINOPHEN\CODEINE PHOSPHATE
     Dosage: ACETAMINOPHEN/CODEINE PHOSPHATE
     Route: 065
  619. ACETAMINOPHEN\CODEINE PHOSPHATE [Concomitant]
     Active Substance: ACETAMINOPHEN\CODEINE PHOSPHATE
     Dosage: CODEINE PHOSPHATE;PARACETAMOL
  620. ACETAMINOPHEN\CODEINE PHOSPHATE [Concomitant]
     Active Substance: ACETAMINOPHEN\CODEINE PHOSPHATE
     Dosage: CODEINE PHOSPHATE;PARACETAMOL
     Route: 065
  621. ACETAMINOPHEN\CODEINE PHOSPHATE [Concomitant]
     Active Substance: ACETAMINOPHEN\CODEINE PHOSPHATE
     Dosage: CODEINE PHOSPHATE;PARACETAMOL
     Route: 065
  622. ACETAMINOPHEN\CODEINE PHOSPHATE [Concomitant]
     Active Substance: ACETAMINOPHEN\CODEINE PHOSPHATE
     Dosage: ACETAMINOPHEN;CODEINE PHOSPHATE
  623. LISINOPRIL [Concomitant]
     Active Substance: LISINOPRIL
     Indication: Product used for unknown indication
     Route: 065
  624. LISINOPRIL [Concomitant]
     Active Substance: LISINOPRIL
     Route: 065
  625. LISINOPRIL [Concomitant]
     Active Substance: LISINOPRIL
     Route: 065
  626. ALBUTEROL SULFATE [Concomitant]
     Active Substance: ALBUTEROL SULFATE
     Indication: Product used for unknown indication
     Dosage: METERED-DOSE (AEROSOL)
     Route: 065
  627. CEFUROXIME [Concomitant]
     Active Substance: CEFUROXIME
     Indication: Product used for unknown indication
  628. CEFUROXIME [Concomitant]
     Active Substance: CEFUROXIME
     Dosage: CEFUROXIME AXETIL
     Route: 065
  629. CEFUROXIME [Concomitant]
     Active Substance: CEFUROXIME
     Route: 065
  630. CEFUROXIME [Concomitant]
     Active Substance: CEFUROXIME
     Dosage: CEFUROXIME AXETIL
     Route: 065
  631. CEFUROXIME [Concomitant]
     Active Substance: CEFUROXIME
     Route: 065
  632. CEFUROXIME [Concomitant]
     Active Substance: CEFUROXIME
     Dosage: CEFUROXIME AXETIL
     Route: 065
  633. CEPHALEXIN [Concomitant]
     Active Substance: CEPHALEXIN
     Indication: Product used for unknown indication
     Dosage: NOT SPECIFIED
  634. CEPHALEXIN [Concomitant]
     Active Substance: CEPHALEXIN
  635. CEPHALEXIN [Concomitant]
     Active Substance: CEPHALEXIN
     Dosage: CEPHALEXIN MONOHYDRATE
     Route: 065
  636. CEPHALEXIN [Concomitant]
     Active Substance: CEPHALEXIN
     Dosage: CEPHALEXIN
  637. CEPHALEXIN [Concomitant]
     Active Substance: CEPHALEXIN
     Dosage: CEPHALEXIN
  638. CEPHALEXIN [Concomitant]
     Active Substance: CEPHALEXIN
     Route: 065
  639. CEPHALEXIN [Concomitant]
     Active Substance: CEPHALEXIN
     Route: 065
  640. CEPHALEXIN [Concomitant]
     Active Substance: CEPHALEXIN
  641. DANAZOL [Concomitant]
     Active Substance: DANAZOL
     Indication: Product used for unknown indication
     Route: 065
  642. DANAZOL [Concomitant]
     Active Substance: DANAZOL
     Route: 065
  643. DANAZOL [Concomitant]
     Active Substance: DANAZOL
     Route: 065
  644. DANAZOL [Concomitant]
     Active Substance: DANAZOL
     Route: 065
  645. DANAZOL [Concomitant]
     Active Substance: DANAZOL
     Route: 065
  646. DANAZOL [Concomitant]
     Active Substance: DANAZOL
  647. DANAZOL [Concomitant]
     Active Substance: DANAZOL
  648. DANAZOL [Concomitant]
     Active Substance: DANAZOL
     Route: 065
  649. CYMBALTA [Concomitant]
     Active Substance: DULOXETINE HYDROCHLORIDE
     Indication: Product used for unknown indication
  650. CYMBALTA [Concomitant]
     Active Substance: DULOXETINE HYDROCHLORIDE
  651. CYMBALTA [Concomitant]
     Active Substance: DULOXETINE HYDROCHLORIDE
  652. CYMBALTA [Concomitant]
     Active Substance: DULOXETINE HYDROCHLORIDE
  653. DANAZOL [Concomitant]
     Active Substance: DANAZOL
     Indication: Product used for unknown indication
     Route: 065
  654. DEXAMETHASONE [Concomitant]
     Active Substance: DEXAMETHASONE
     Indication: Product used for unknown indication
     Route: 065
  655. ELAVIL [Concomitant]
     Active Substance: AMITRIPTYLINE HYDROCHLORIDE
     Indication: Product used for unknown indication
     Route: 065
  656. ELAVIL [Concomitant]
     Active Substance: AMITRIPTYLINE HYDROCHLORIDE
     Route: 065
  657. FERROUS FUMARATE [Concomitant]
     Active Substance: FERROUS FUMARATE
     Indication: Product used for unknown indication
     Route: 065
  658. FLUTICASONE [Concomitant]
     Active Substance: FLUTICASONE
     Indication: Product used for unknown indication
     Route: 065
  659. FLUTICASONE [Concomitant]
     Active Substance: FLUTICASONE
     Route: 065
  660. FLUTICASONE [Concomitant]
     Active Substance: FLUTICASONE
     Route: 065
  661. FLUTICASONE [Concomitant]
     Active Substance: FLUTICASONE
     Route: 055
  662. FLUTICASONE [Concomitant]
     Active Substance: FLUTICASONE
     Route: 055
  663. FLUTICASONE [Concomitant]
     Active Substance: FLUTICASONE
     Route: 065
  664. FLUTICASONE [Concomitant]
     Active Substance: FLUTICASONE
     Route: 065
  665. FLUTICASONE [Concomitant]
     Active Substance: FLUTICASONE
     Route: 065
  666. FLUTICASONE [Concomitant]
     Active Substance: FLUTICASONE
     Route: 065
  667. FLUTICASONE [Concomitant]
     Active Substance: FLUTICASONE
     Route: 065
  668. FLUTICASONE [Concomitant]
     Active Substance: FLUTICASONE
     Route: 065
  669. FLUTICASONE [Concomitant]
     Active Substance: FLUTICASONE
     Dosage: FLUTICASONE
     Route: 065
  670. FLUTICASONE [Concomitant]
     Active Substance: FLUTICASONE
     Route: 065
  671. FLUTICASONE [Concomitant]
     Active Substance: FLUTICASONE
     Route: 065
  672. FROVATRIPTAN [Concomitant]
     Active Substance: FROVATRIPTAN
     Indication: Product used for unknown indication
     Dosage: FROVATRIPTAN SUCCINATE
     Route: 065
  673. FROVATRIPTAN [Concomitant]
     Active Substance: FROVATRIPTAN
     Route: 065
  674. FROVATRIPTAN [Concomitant]
     Active Substance: FROVATRIPTAN
     Route: 065
  675. FROVATRIPTAN [Concomitant]
     Active Substance: FROVATRIPTAN
     Route: 065
  676. FROVATRIPTAN [Concomitant]
     Active Substance: FROVATRIPTAN
     Dosage: FROVATRIPTAN SUCCINATE
     Route: 065
  677. MACROBID [Concomitant]
     Active Substance: NITROFURANTOIN\NITROFURANTOIN MONOHYDRATE
     Indication: Product used for unknown indication
     Route: 065
  678. MACROBID [Concomitant]
     Active Substance: NITROFURANTOIN\NITROFURANTOIN MONOHYDRATE
     Route: 065
  679. MACROBID [Concomitant]
     Active Substance: NITROFURANTOIN\NITROFURANTOIN MONOHYDRATE
     Route: 065
  680. MACROBID [Concomitant]
     Active Substance: NITROFURANTOIN\NITROFURANTOIN MONOHYDRATE
     Route: 065
  681. MACROBID [Concomitant]
     Active Substance: NITROFURANTOIN\NITROFURANTOIN MONOHYDRATE
     Route: 065
  682. POLYETHYLENE GLYCOLS [Concomitant]
     Active Substance: POLYETHYLENE GLYCOLS
     Indication: Product used for unknown indication
     Route: 065
  683. POLYETHYLENE GLYCOLS [Concomitant]
     Active Substance: POLYETHYLENE GLYCOLS
     Route: 065
  684. METOCLOPRAMIDE [Concomitant]
     Active Substance: METOCLOPRAMIDE
     Indication: Product used for unknown indication
  685. METOCLOPRAMIDE [Concomitant]
     Active Substance: METOCLOPRAMIDE
     Route: 065
  686. METOCLOPRAMIDE [Concomitant]
     Active Substance: METOCLOPRAMIDE
     Route: 065
  687. MORPHINE SULFATE [Concomitant]
     Active Substance: MORPHINE SULFATE
     Indication: Product used for unknown indication
     Route: 065
  688. MORPHINE SULFATE [Concomitant]
     Active Substance: MORPHINE SULFATE
     Route: 065
  689. NAPROXEN [Concomitant]
     Active Substance: NAPROXEN
     Indication: Product used for unknown indication
     Dosage: NOT SPECIFIED
     Route: 065
  690. NAPROXEN [Concomitant]
     Active Substance: NAPROXEN
     Route: 065
  691. NAPROXEN [Concomitant]
     Active Substance: NAPROXEN
     Route: 065
  692. NASONEX [Concomitant]
     Active Substance: MOMETASONE FUROATE
     Indication: Product used for unknown indication
     Route: 065
  693. NASONEX [Concomitant]
     Active Substance: MOMETASONE FUROATE
     Route: 065
  694. NASONEX [Concomitant]
     Active Substance: MOMETASONE FUROATE
     Dosage: SPRAY, METERED DOSE
     Route: 065
  695. NASONEX [Concomitant]
     Active Substance: MOMETASONE FUROATE
     Dosage: SPRAY, METERED DOSE
     Route: 065
  696. NASONEX [Concomitant]
     Active Substance: MOMETASONE FUROATE
     Route: 065
  697. NASONEX [Concomitant]
     Active Substance: MOMETASONE FUROATE
     Route: 065
  698. NASONEX [Concomitant]
     Active Substance: MOMETASONE FUROATE
     Route: 050
  699. NASONEX [Concomitant]
     Active Substance: MOMETASONE FUROATE
     Route: 065
  700. NITROFURANTOIN [Concomitant]
     Active Substance: NITROFURANTOIN
     Indication: Product used for unknown indication
     Route: 065
  701. NITROFURANTOIN [Concomitant]
     Active Substance: NITROFURANTOIN
     Route: 065
  702. NITROFURANTOIN [Concomitant]
     Active Substance: NITROFURANTOIN
     Dosage: NOT SPECIFIED
     Route: 065
  703. OSELTAMIVIR [Concomitant]
     Active Substance: OSELTAMIVIR
     Indication: Product used for unknown indication
  704. OSELTAMIVIR [Concomitant]
     Active Substance: OSELTAMIVIR
     Route: 065
  705. OSELTAMIVIR [Concomitant]
     Active Substance: OSELTAMIVIR
  706. PANTOPRAZOLE [Concomitant]
     Active Substance: PANTOPRAZOLE
     Indication: Product used for unknown indication
     Dosage: PANTOPRAZOLE
     Route: 065
  707. PANTOPRAZOLE [Concomitant]
     Active Substance: PANTOPRAZOLE
  708. PANTOPRAZOLE [Concomitant]
     Active Substance: PANTOPRAZOLE
     Dosage: PANTOPRAZOLE SODIUM
  709. PANTOPRAZOLE [Concomitant]
     Active Substance: PANTOPRAZOLE
     Route: 065
  710. PANTOPRAZOLE [Concomitant]
     Active Substance: PANTOPRAZOLE
     Route: 065
  711. PANTOPRAZOLE [Concomitant]
     Active Substance: PANTOPRAZOLE
     Dosage: PANTOPRAZOLE SODIUM MONOHYDRATE
     Route: 065
  712. PANTOPRAZOLE [Concomitant]
     Active Substance: PANTOPRAZOLE
     Dosage: PANTOPRAZOLE
     Route: 065
  713. PANTOPRAZOLE [Concomitant]
     Active Substance: PANTOPRAZOLE
     Route: 065
  714. STATEX [Concomitant]
     Indication: Product used for unknown indication
     Route: 065
  715. SULFAMETHOXAZOLE [Concomitant]
     Active Substance: SULFAMETHOXAZOLE
     Indication: Product used for unknown indication
     Route: 065
  716. SULFAMETHOXAZOLE [Concomitant]
     Active Substance: SULFAMETHOXAZOLE
     Route: 065
  717. SULFAMETHOXAZOLE [Concomitant]
     Active Substance: SULFAMETHOXAZOLE
     Route: 065
  718. SULFAMETHOXAZOLE [Concomitant]
     Active Substance: SULFAMETHOXAZOLE
     Route: 065
  719. SULFAMETHOXAZOLE [Concomitant]
     Active Substance: SULFAMETHOXAZOLE
     Route: 065
  720. SULFAMETHOXAZOLE [Concomitant]
     Active Substance: SULFAMETHOXAZOLE
     Route: 065
  721. SULFATRIM [Concomitant]
     Active Substance: SULFAMETHOXAZOLE\TRIMETHOPRIM
     Indication: Product used for unknown indication
     Route: 065
  722. SULFATRIM [Concomitant]
     Active Substance: SULFAMETHOXAZOLE\TRIMETHOPRIM
     Route: 065
  723. SULFATRIM [Concomitant]
     Active Substance: SULFAMETHOXAZOLE\TRIMETHOPRIM
     Route: 065
  724. SULFATRIM [Concomitant]
     Active Substance: SULFAMETHOXAZOLE\TRIMETHOPRIM
     Route: 065
  725. SULFATRIM [Concomitant]
     Active Substance: SULFAMETHOXAZOLE\TRIMETHOPRIM
     Route: 065
  726. ACETAMINOPHEN\CAFFEINE\CODEINE [Concomitant]
     Active Substance: ACETAMINOPHEN\CAFFEINE\CODEINE
     Indication: Product used for unknown indication
  727. PREDNISONE [Concomitant]
     Active Substance: PREDNISONE
     Indication: Product used for unknown indication
  728. PREDNISONE [Concomitant]
     Active Substance: PREDNISONE
  729. ACETAMINOPHEN\TRAMADOL HYDROCHLORIDE [Concomitant]
     Active Substance: ACETAMINOPHEN\TRAMADOL HYDROCHLORIDE
     Indication: Product used for unknown indication
     Route: 065
  730. ACETAMINOPHEN\TRAMADOL HYDROCHLORIDE [Concomitant]
     Active Substance: ACETAMINOPHEN\TRAMADOL HYDROCHLORIDE
     Route: 065
  731. ACETAMINOPHEN\TRAMADOL HYDROCHLORIDE [Concomitant]
     Active Substance: ACETAMINOPHEN\TRAMADOL HYDROCHLORIDE
     Route: 065
  732. ACETAMINOPHEN\TRAMADOL HYDROCHLORIDE [Concomitant]
     Active Substance: ACETAMINOPHEN\TRAMADOL HYDROCHLORIDE
     Route: 065
  733. ALLOPURINOL [Concomitant]
     Active Substance: ALLOPURINOL
     Indication: Product used for unknown indication
     Route: 065
  734. ALLOPURINOL [Concomitant]
     Active Substance: ALLOPURINOL
     Route: 065
  735. AMOXICILLIN [Concomitant]
     Active Substance: AMOXICILLIN
     Indication: Product used for unknown indication
  736. AMOXICILLIN [Concomitant]
     Active Substance: AMOXICILLIN
     Dosage: AMOXICILIN TRIHYDRATE
  737. AMOXICILLIN [Concomitant]
     Active Substance: AMOXICILLIN
     Dosage: AMOXICILIN TRIHYDRATE
  738. AMOXICILLIN [Concomitant]
     Active Substance: AMOXICILLIN
     Route: 065
  739. AMOXICILLIN [Concomitant]
     Active Substance: AMOXICILLIN
     Dosage: AMOXICILIN TRIHYDRATE,
     Route: 065
  740. AZITHROMYCIN [Concomitant]
     Active Substance: AZITHROMYCIN
     Indication: Product used for unknown indication
  741. AZITHROMYCIN [Concomitant]
     Active Substance: AZITHROMYCIN
  742. AZITHROMYCIN [Concomitant]
     Active Substance: AZITHROMYCIN
  743. METRONIDAZOLE [Concomitant]
     Active Substance: METRONIDAZOLE
     Indication: Migraine
  744. METRONIDAZOLE [Concomitant]
     Active Substance: METRONIDAZOLE
  745. VENLAFAXINE [Concomitant]
     Active Substance: VENLAFAXINE HYDROCHLORIDE
     Indication: Product used for unknown indication
     Route: 065
  746. VENLAFAXINE [Concomitant]
     Active Substance: VENLAFAXINE HYDROCHLORIDE
     Route: 065
  747. VENLAFAXINE [Concomitant]
     Active Substance: VENLAFAXINE HYDROCHLORIDE
     Route: 065
  748. FROVA [Concomitant]
     Active Substance: FROVATRIPTAN SUCCINATE
     Indication: Product used for unknown indication
  749. LISINOPRIL [Concomitant]
     Active Substance: LISINOPRIL
     Indication: Product used for unknown indication
  750. LISINOPRIL [Concomitant]
     Active Substance: LISINOPRIL
  751. LISINOPRIL [Concomitant]
     Active Substance: LISINOPRIL
  752. ALBUTEROL [Concomitant]
     Active Substance: ALBUTEROL
     Indication: Product used for unknown indication
     Dosage: NOT SPECIFIED
  753. ALBUTEROL [Concomitant]
     Active Substance: ALBUTEROL
  754. SIMVASTATIN [Concomitant]
     Active Substance: SIMVASTATIN
     Indication: Product used for unknown indication
  755. ACETAMINOPHEN\TRAMADOL HYDROCHLORIDE [Concomitant]
     Active Substance: ACETAMINOPHEN\TRAMADOL HYDROCHLORIDE
     Indication: Product used for unknown indication
     Route: 065
  756. CODEINE [Concomitant]
     Active Substance: CODEINE
     Indication: Product used for unknown indication
  757. SULFAMETHOXAZOLE\TRIMETHOPRIM [Concomitant]
     Active Substance: SULFAMETHOXAZOLE\TRIMETHOPRIM
     Indication: Product used for unknown indication
     Route: 065
  758. SULFAMETHOXAZOLE\TRIMETHOPRIM [Concomitant]
     Active Substance: SULFAMETHOXAZOLE\TRIMETHOPRIM
     Route: 065
  759. SULFAMETHOXAZOLE\TRIMETHOPRIM [Concomitant]
     Active Substance: SULFAMETHOXAZOLE\TRIMETHOPRIM
     Route: 065
  760. SULFAMETHOXAZOLE\TRIMETHOPRIM [Concomitant]
     Active Substance: SULFAMETHOXAZOLE\TRIMETHOPRIM
     Route: 065

REACTIONS (11)
  - Drug intolerance [Unknown]
  - Dysphonia [Unknown]
  - Swollen tongue [Unknown]
  - Headache [Unknown]
  - Swelling face [Unknown]
  - Hypersensitivity [Unknown]
  - Angioedema [Unknown]
  - Drug ineffective [Unknown]
  - Drug ineffective for unapproved indication [Unknown]
  - Product use in unapproved indication [Unknown]
  - Off label use [Unknown]
